FAERS Safety Report 24381274 (Version 1)
Quarter: 2024Q4

REPORT INFORMATION
  Report Type: Spontaneous
  Country: US (occurrence: US)
  Receive Date: 20241001
  Receipt Date: 20241001
  Transmission Date: 20250114
  Serious: No
  Sender: SANOFI AVENTIS
  Company Number: US-SA-2024SA275910

PATIENT
  Age: 3 Year
  Sex: Female
  Weight: 32.8 kg

DRUGS (2)
  1. DUPIXENT [Suspect]
     Active Substance: DUPILUMAB
     Indication: Dermatitis atopic
     Dosage: 300 MG, Q4W
     Route: 058
     Dates: start: 202406
  2. DUPIXENT [Suspect]
     Active Substance: DUPILUMAB
     Indication: Dermatitis allergic

REACTIONS (5)
  - Dry skin [Unknown]
  - Condition aggravated [Unknown]
  - Rash erythematous [Unknown]
  - Skin burning sensation [Unknown]
  - Lip dry [Unknown]

NARRATIVE: CASE EVENT DATE: 20240101
